FAERS Safety Report 7788729-9 (Version None)
Quarter: 2011Q3

REPORT INFORMATION
  Report Type: 
  Country: None (occurrence: None)
  Receive Date: 20110930
  Receipt Date: 20110921
  Transmission Date: 20111222
  Serious: Yes (Hospitalization)
  Sender: FDA-Public Use
  Company Number: US-US-EMD SERONO, INC.-7085130

PATIENT
  Sex: Female

DRUGS (1)
  1. REBIF [Suspect]
     Indication: PRODUCT USED FOR UNKNOWN INDICATION
     Route: 058
     Dates: start: 20040923

REACTIONS (5)
  - INJECTION SITE ERYTHEMA [None]
  - ANKLE FRACTURE [None]
  - INJECTION SITE PAIN [None]
  - LIMB INJURY [None]
  - MUSCULAR WEAKNESS [None]
